FAERS Safety Report 24204268 (Version 1)
Quarter: 2024Q3

REPORT INFORMATION
  Report Type: Spontaneous
  Country: US (occurrence: US)
  Receive Date: 20240813
  Receipt Date: 20240813
  Transmission Date: 20241017
  Serious: No
  Sender: MYLAN
  Company Number: US-MYLANLABS-2024M1074131

PATIENT
  Sex: Male

DRUGS (4)
  1. LIPITOR [Suspect]
     Active Substance: ATORVASTATIN CALCIUM
     Indication: Product used for unknown indication
     Dosage: UNK
     Route: 065
  2. BESREMI [Suspect]
     Active Substance: ROPEGINTERFERON ALFA-2B-NJFT
     Indication: Polycythaemia vera
     Dosage: 150 MICROGRAM, Q2W (AT EVERY FOURTEEN DAYS)
     Route: 058
     Dates: start: 20220323
  3. HYDROCHLOROTHIAZIDE [Suspect]
     Active Substance: HYDROCHLOROTHIAZIDE
     Indication: Blood pressure measurement
     Dosage: UNK
     Route: 065
  4. SYNVISC [Concomitant]
     Active Substance: HYLAN G-F 20
     Dosage: UNK (ONCE EVERY 3 MONTH)
     Route: 065

REACTIONS (10)
  - Fatigue [Unknown]
  - Arthralgia [Unknown]
  - Hepatic steatosis [Unknown]
  - Blood cholesterol decreased [Unknown]
  - Condition aggravated [Unknown]
  - Peripheral swelling [Unknown]
  - Blood sodium decreased [Unknown]
  - Loss of personal independence in daily activities [Unknown]
  - Aspartate aminotransferase increased [Unknown]
  - Alanine aminotransferase increased [Unknown]
